FAERS Safety Report 22100750 (Version 1)
Quarter: 2023Q1

REPORT INFORMATION
  Report Type: Spontaneous
  Country: US (occurrence: None)
  Receive Date: 20230316
  Receipt Date: 20230316
  Transmission Date: 20230418
  Serious: Yes (Hospitalization)
  Sender: FDA-Public Use
  Company Number: US-ROCHE-3306534

PATIENT
  Age: 56 Year
  Sex: Male

DRUGS (9)
  1. COTELLIC [Suspect]
     Active Substance: COBIMETINIB
     Indication: Metastases to central nervous system
     Dosage: OFF FOR 7 DAYS OF A 28 DAY CYCLE,
     Route: 048
     Dates: start: 202302
  2. COTELLIC [Suspect]
     Active Substance: COBIMETINIB
     Indication: Metastases to lung
  3. COTELLIC [Suspect]
     Active Substance: COBIMETINIB
     Indication: Malignant melanoma
  4. ZELBORAF [Suspect]
     Active Substance: VEMURAFENIB
     Indication: Metastases to central nervous system
     Route: 048
     Dates: start: 202302
  5. ZELBORAF [Suspect]
     Active Substance: VEMURAFENIB
     Indication: Metastases to lung
  6. ZELBORAF [Suspect]
     Active Substance: VEMURAFENIB
     Indication: Malignant melanoma
  7. LYNPARZA [Suspect]
     Active Substance: OLAPARIB
     Indication: Metastases to central nervous system
     Route: 065
  8. LYNPARZA [Suspect]
     Active Substance: OLAPARIB
     Indication: Metastases to lung
  9. LYNPARZA [Suspect]
     Active Substance: OLAPARIB
     Indication: Malignant melanoma

REACTIONS (1)
  - Renal failure [Unknown]
